FAERS Safety Report 11044098 (Version 1)
Quarter: 2015Q2

REPORT INFORMATION
  Report Type: Spontaneous
  Country: FR (occurrence: FR)
  Receive Date: 20150417
  Receipt Date: 20150417
  Transmission Date: 20150821
  Serious: Yes (Death, Hospitalization, Other)
  Sender: FDA-Public Use
  Company Number: FR-GLAXOSMITHKLINE INC.-FR2015GSK047641

PATIENT
  Age: 76 Year
  Sex: Male

DRUGS (8)
  1. TRUVADA [Concomitant]
     Active Substance: EMTRICITABINE\TENOFOVIR DISOPROXIL FUMARATE
     Dosage: 1 UNK, QD
     Route: 048
     Dates: start: 2006
  2. CERTICAN [Concomitant]
     Active Substance: EVEROLIMUS
     Dosage: 0.75 MG, BID
     Route: 048
     Dates: start: 2006
  3. ATENOLOL. [Concomitant]
     Active Substance: ATENOLOL
     Dosage: 75 MG, QD
     Route: 048
     Dates: start: 201407
  4. TRIATEC [Concomitant]
     Active Substance: RAMIPRIL
     Dosage: 1 UNK, QD
     Route: 048
     Dates: start: 201407, end: 20150220
  5. WELLVONE [Suspect]
     Active Substance: ATOVAQUONE
     Indication: PRODUCT USED FOR UNKNOWN INDICATION
     Dosage: 750 MG, TID
     Route: 048
     Dates: start: 20141211, end: 20150303
  6. LOVENOX [Concomitant]
     Active Substance: ENOXAPARIN SODIUM
     Dosage: 0.6 ML, QD
     Route: 058
     Dates: start: 201407, end: 20150212
  7. OXALIPLATINE [Suspect]
     Active Substance: OXALIPLATIN
     Indication: PRODUCT USED FOR UNKNOWN INDICATION
     Dosage: 170 MG, CYC
     Route: 042
     Dates: start: 20141212, end: 20150203
  8. GEMCITABINE [Suspect]
     Active Substance: GEMCITABINE\GEMCITABINE HYDROCHLORIDE
     Indication: PRODUCT USED FOR UNKNOWN INDICATION
     Dosage: 1700 MG, CYC
     Route: 042
     Dates: start: 20141212, end: 20150203

REACTIONS (10)
  - Pneumonia [Fatal]
  - Bronchopulmonary aspergillosis [Fatal]
  - Melaena [Recovered/Resolved]
  - Respiratory distress [Unknown]
  - Diarrhoea [Unknown]
  - Sepsis [Unknown]
  - Acute kidney injury [Unknown]
  - Thrombocytopenia [Not Recovered/Not Resolved]
  - Renal tubular disorder [Unknown]
  - Lymphopenia [Not Recovered/Not Resolved]

NARRATIVE: CASE EVENT DATE: 201502
